FAERS Safety Report 9852217 (Version 1)
Quarter: 2014Q1

REPORT INFORMATION
  Report Type: Spontaneous
  Country: US (occurrence: US)
  Receive Date: 20140129
  Receipt Date: 20140129
  Transmission Date: 20141002
  Serious: Yes (Hospitalization)
  Sender: FDA-Public Use
  Company Number: US-BRACCO-009664

PATIENT
  Age: 56 Year
  Sex: Female
  Weight: 81 kg

DRUGS (11)
  1. VISTARIL [Concomitant]
  2. VITAMIN B12 [Concomitant]
  3. CALCIUM [Concomitant]
  4. ASPIRIN [Concomitant]
  5. CENTRUM [Concomitant]
  6. FENOFIBRATE [Concomitant]
  7. PROZAC [Concomitant]
  8. KLONOPIN [Concomitant]
  9. TRAZODONE [Concomitant]
  10. PRAVASTATIN [Concomitant]
  11. MULTIHANCE [Suspect]
     Indication: NUCLEAR MAGNETIC RESONANCE IMAGING
     Route: 042
     Dates: start: 20130419, end: 20130419

REACTIONS (1)
  - Anaphylactic reaction [Recovered/Resolved]
